FAERS Safety Report 17706714 (Version 1)
Quarter: 2020Q2

REPORT INFORMATION
  Report Type: Spontaneous
  Country: US (occurrence: US)
  Receive Date: 20200424
  Receipt Date: 20200424
  Transmission Date: 20200714
  Serious: Yes (Death)
  Sender: FDA-Public Use
  Company Number: US-ABBVIE-20K-163-3378412-00

PATIENT
  Age: 79 Year
  Sex: Female

DRUGS (1)
  1. VENETOCLAX. [Suspect]
     Active Substance: VENETOCLAX
     Indication: MANTLE CELL LYMPHOMA
     Route: 048
     Dates: start: 2020, end: 2020

REACTIONS (2)
  - Off label use [Unknown]
  - Coronavirus infection [Fatal]

NARRATIVE: CASE EVENT DATE: 2020
